FAERS Safety Report 6832099-7 (Version None)
Quarter: 2010Q3

REPORT INFORMATION
  Report Type: 
  Country: None (occurrence: None)
  Receive Date: 20100712
  Receipt Date: 20100702
  Transmission Date: 20110219
  Serious: Yes (Hospitalization, Other)
  Sender: FDA-Public Use
  Company Number: US-TEVA-238247USA

PATIENT
  Sex: Male
  Weight: 130 kg

DRUGS (2)
  1. COPAXONE [Suspect]
     Indication: MULTIPLE SCLEROSIS
     Route: 058
  2. MITOXANTRONE HYDROCHLORIDE [Suspect]
     Indication: MULTIPLE SCLEROSIS
     Dosage: ONCE EVERY 3 MONTHS
     Route: 042
     Dates: start: 20070831, end: 20090801

REACTIONS (7)
  - ACUTE PROMYELOCYTIC LEUKAEMIA [None]
  - CEREBROVASCULAR ACCIDENT [None]
  - CHOLECYSTITIS [None]
  - DEEP VEIN THROMBOSIS [None]
  - FATIGUE [None]
  - HAEMATEMESIS [None]
  - NAUSEA [None]
